FAERS Safety Report 21065490 (Version 1)
Quarter: 2022Q3

REPORT INFORMATION
  Report Type: Report from Study
  Country: US (occurrence: US)
  Receive Date: 20220711
  Receipt Date: 20220711
  Transmission Date: 20221026
  Serious: No
  Sender: FDA-Public Use
  Company Number: US-NOVARTISTESTPH-NVSC2022US156998

PATIENT
  Age: 29 Year
  Sex: Male
  Weight: 104.33 kg

DRUGS (1)
  1. COSENTYX [Suspect]
     Active Substance: SECUKINUMAB
     Indication: Guttate psoriasis
     Dosage: 300 MG, QMO
     Route: 058
     Dates: start: 20220324

REACTIONS (2)
  - Myalgia [Recovered/Resolved]
  - Product use in unapproved indication [Unknown]

NARRATIVE: CASE EVENT DATE: 20220617
